FAERS Safety Report 4578828-7 (Version None)
Quarter: 2005Q1

REPORT INFORMATION
  Report Type: 
  Country: None (occurrence: None)
  Receive Date: 20050209
  Receipt Date: 20050209
  Transmission Date: 20050727
  Serious: Yes (Hospitalization)
  Sender: FDA-Public Use
  Company Number: None

PATIENT
  Age: 26 Year
  Sex: Female
  Weight: 55 kg

DRUGS (3)
  1. SEASONALE [Suspect]
     Indication: MENSTRUATION IRREGULAR
  2. CLARITIN [Concomitant]
  3. ALBUTEROL [Concomitant]

REACTIONS (5)
  - COLITIS ISCHAEMIC [None]
  - DECREASED APPETITE [None]
  - DIARRHOEA HAEMORRHAGIC [None]
  - DIZZINESS [None]
  - THERAPEUTIC PRODUCT INEFFECTIVE [None]
